FAERS Safety Report 6500192-4 (Version None)
Quarter: 2009Q4

REPORT INFORMATION
  Report Type: 
  Country: None (occurrence: None)
  Receive Date: 20091214
  Receipt Date: 20091214
  Transmission Date: 20100525
  Serious: Yes (Life-Threatening, Hospitalization)
  Sender: FDA-Public Use
  Company Number: None

PATIENT
  Sex: Female
  Weight: 90.7194 kg

DRUGS (1)
  1. CITROMA (SWAN) [Suspect]
     Indication: GASTROINTESTINAL EXAMINATION
     Dosage: 3 BOTTLES/10 OZ
     Dates: start: 20090910

REACTIONS (2)
  - CARDIAC FAILURE [None]
  - ERYTHEMA [None]
